FAERS Safety Report 19986539 (Version 1)
Quarter: 2021Q4

REPORT INFORMATION
  Report Type: Spontaneous
  Country: US (occurrence: US)
  Receive Date: 20211022
  Receipt Date: 20211022
  Transmission Date: 20220303
  Serious: Yes (Other)
  Sender: FDA-Public Use
  Company Number: US-AMGEN-USASP2021159361

PATIENT
  Age: 63 Year
  Sex: Female

DRUGS (1)
  1. PROLIA [Suspect]
     Active Substance: DENOSUMAB
     Indication: Osteopenia
     Dosage: 60 MILLIGRAM, Q6MO
     Route: 065
     Dates: start: 201712

REACTIONS (26)
  - Syncope [Unknown]
  - Illness [Unknown]
  - Gait disturbance [Not Recovered/Not Resolved]
  - Oral herpes [Unknown]
  - Nausea [Unknown]
  - Confusional state [Unknown]
  - Hypoaesthesia [Unknown]
  - Cough [Unknown]
  - Decreased appetite [Unknown]
  - Eating disorder [Unknown]
  - Product use in unapproved indication [Unknown]
  - Muscle strain [Unknown]
  - Diarrhoea [Unknown]
  - Weight decreased [Unknown]
  - Asthenia [Unknown]
  - Dizziness [Not Recovered/Not Resolved]
  - Abdominal pain upper [Unknown]
  - Back pain [Recovering/Resolving]
  - Insomnia [Unknown]
  - Myalgia [Recovering/Resolving]
  - Arthralgia [Recovering/Resolving]
  - Swelling face [Unknown]
  - Constipation [Recovered/Resolved]
  - Eczema [Unknown]
  - Bone pain [Recovering/Resolving]
  - Pain in extremity [Unknown]

NARRATIVE: CASE EVENT DATE: 20171201
